FAERS Safety Report 8576109-8 (Version None)
Quarter: 2012Q3

REPORT INFORMATION
  Report Type: 
  Country: None (occurrence: None)
  Receive Date: 20120724
  Receipt Date: 20120706
  Transmission Date: 20120928
  Serious: Yes (Other)
  Sender: FDA-Public Use
  Company Number: 2012-01058

PATIENT
  Age: 80 Year
  Sex: Female

DRUGS (7)
  1. CLOPIDOGREL [Concomitant]
  2. LISINOPRIL [Concomitant]
  3. JANUVIA [Concomitant]
  4. LANSOPRAZOLE [Concomitant]
  5. METFORMIN HYDROCHLORIDE [Concomitant]
  6. SIMVASTATIN [Suspect]
     Indication: HYPERTENSION
  7. ISPAGHULA HUSK + PLANTAGO OVATA (FYBOGEL) [Concomitant]

REACTIONS (2)
  - PAIN IN EXTREMITY [None]
  - ABASIA [None]
